FAERS Safety Report 10034327 (Version 1)
Quarter: 2014Q1

REPORT INFORMATION
  Report Type: Spontaneous
  Country: US (occurrence: None)
  Receive Date: 20140324
  Receipt Date: 20140324
  Transmission Date: 20141002
  Serious: Yes (Other)
  Sender: FDA-Public Use
  Company Number: None

PATIENT
  Age: 24 Year
  Sex: Male
  Weight: 108.86 kg

DRUGS (2)
  1. THORAZINE [Suspect]
     Indication: INSOMNIA
     Dosage: 1 PILL
     Route: 048
     Dates: start: 20140227, end: 20140323
  2. THORAZINE [Suspect]
     Indication: SCHIZOPHRENIA
     Dosage: 1 PILL
     Route: 048
     Dates: start: 20140227, end: 20140323

REACTIONS (3)
  - Hypoaesthesia [None]
  - Paraesthesia [None]
  - Muscular weakness [None]
